FAERS Safety Report 5638970-6 (Version None)
Quarter: 2008Q1

REPORT INFORMATION
  Report Type: 
  Country: None (occurrence: None)
  Receive Date: 20080222
  Receipt Date: 20080214
  Transmission Date: 20080703
  Serious: Yes (Other)
  Sender: FDA-Public Use
  Company Number: 2008SP003517

PATIENT
  Age: 70 Year
  Sex: Male

DRUGS (7)
  1. IMDUR [Suspect]
     Indication: DRUG USE FOR UNKNOWN INDICATION
     Dosage: 60 MG; QD; PO
     Route: 048
     Dates: start: 20080117
  2. PANTOPRAZOLE SODIUM [Concomitant]
  3. DIABETA [Concomitant]
  4. GLUCOPHAGE [Concomitant]
  5. LOPRESSOR [Concomitant]
  6. LIPITOR [Concomitant]
  7. PLAVIX [Concomitant]

REACTIONS (1)
  - HYPERGLYCAEMIA [None]
